FAERS Safety Report 12064634 (Version 5)
Quarter: 2016Q3

REPORT INFORMATION
  Report Type: Report from Study
  Country: CH (occurrence: CH)
  Receive Date: 20160210
  Receipt Date: 20160720
  Transmission Date: 20161109
  Serious: Yes (Other)
  Sender: FDA-Public Use
  Company Number: CH-ABBVIE-16P-151-1541144-00

PATIENT
  Sex: Male

DRUGS (1)
  1. DUODOPA [Suspect]
     Active Substance: CARBIDOPA\LEVODOPA
     Indication: PARKINSON^S DISEASE
     Dosage: MD 9ML; CD DAY 3.1ML/H; CD NIGHT: 2.2ML/H; ED 1ML, 24TH THERAPY
     Route: 050
     Dates: start: 20141103

REACTIONS (8)
  - Device connection issue [Unknown]
  - Device dislocation [Recovered/Resolved]
  - Stoma site discharge [Not Recovered/Not Resolved]
  - Haemorrhage [Unknown]
  - Excessive granulation tissue [Not Recovered/Not Resolved]
  - Stoma site haemorrhage [Unknown]
  - Device dislocation [Unknown]
  - Stoma site hypergranulation [Not Recovered/Not Resolved]
